FAERS Safety Report 16249315 (Version 1)
Quarter: 2019Q2

REPORT INFORMATION
  Report Type: Spontaneous
  Country: FR (occurrence: FR)
  Receive Date: 20190429
  Receipt Date: 20190429
  Transmission Date: 20190711
  Serious: Yes (Hospitalization)
  Sender: FDA-Public Use
  Company Number: FR-ACCORD-124694

PATIENT
  Age: 68 Year
  Sex: Female

DRUGS (13)
  1. IMODIUM [Concomitant]
     Active Substance: LOPERAMIDE HYDROCHLORIDE
  2. PRIMPERAN [Concomitant]
     Active Substance: METOCLOPRAMIDE HYDROCHLORIDE
  3. SPECIAFOLDINE [Concomitant]
     Active Substance: FOLIC ACID
     Dosage: 5 MG TABLET
  4. SERESTA [Concomitant]
     Active Substance: OXAZEPAM
     Dosage: 50 MG, SCORED TABLET,  10 MG TABLETS
  5. TEARS GEL [Concomitant]
  6. ACUPAN [Concomitant]
     Active Substance: NEFOPAM HYDROCHLORIDE
  7. ATARAX [Concomitant]
     Active Substance: HYDROXYZINE HYDROCHLORIDE
     Dosage: 25 MG FILM-COATED TABLETS
  8. ERBITUX [Suspect]
     Active Substance: CETUXIMAB
     Indication: RECTAL ADENOCARCINOMA
     Dosage: 1 CURE TOUS LES 15 JOURS
     Route: 042
     Dates: start: 20190117
  9. NORSET [Concomitant]
     Active Substance: MIRTAZAPINE
  10. LEVOTHYROX [Concomitant]
     Active Substance: LEVOTHYROXINE
     Dosage: 100 MICROGRAMS, SCORED TABLET
  11. FLUOROURACIL. [Suspect]
     Active Substance: FLUOROURACIL
     Indication: RECTAL ADENOCARCINOMA
     Dosage: 1 COURSE EVERY 15 DAYS
     Route: 042
     Dates: start: 20190117
  12. FOLINIC ACID [Suspect]
     Active Substance: LEUCOVORIN
     Indication: RECTAL ADENOCARCINOMA
     Dosage: 1 COURSE EVERY 15 DAYS
     Route: 042
     Dates: start: 20190117
  13. INEXIUM [Concomitant]
     Active Substance: ESOMEPRAZOLE

REACTIONS (4)
  - Palmar-plantar erythrodysaesthesia syndrome [Not Recovered/Not Resolved]
  - Weight decreased [Not Recovered/Not Resolved]
  - Mucosal inflammation [Recovering/Resolving]
  - Diarrhoea [Not Recovered/Not Resolved]

NARRATIVE: CASE EVENT DATE: 20190117
